FAERS Safety Report 6490289-X (Version None)
Quarter: 2009Q4

REPORT INFORMATION
  Report Type: 
  Country: None (occurrence: None)
  Receive Date: 20091124
  Receipt Date: 20090311
  Transmission Date: 20100525
  Serious: Yes (Life-Threatening)
  Sender: FDA-Public Use
  Company Number: 2009-193072-NL

PATIENT
  Age: 85 Year
  Sex: Male

DRUGS (1)
  1. TICE BCG [Suspect]
     Indication: BLADDER CANCER
     Dosage: INVES
     Route: 043
     Dates: start: 20020901, end: 20060601

REACTIONS (1)
  - DISSEMINATED TUBERCULOSIS [None]
